FAERS Safety Report 17188975 (Version 1)
Quarter: 2019Q4

REPORT INFORMATION
  Report Type: Spontaneous
  Country: NL (occurrence: NL)
  Receive Date: 20191222
  Receipt Date: 20191222
  Transmission Date: 20200122
  Serious: Yes (Hospitalization)
  Sender: FDA-Public Use
  Company Number: NL-BIOGEN-2019BI00818696

PATIENT
  Age: 61 Year
  Sex: Female

DRUGS (1)
  1. FAMPYRA [Suspect]
     Active Substance: DALFAMPRIDINE
     Indication: GAIT DISTURBANCE
     Route: 048
     Dates: start: 20190921, end: 2019

REACTIONS (1)
  - Renal function test abnormal [Not Recovered/Not Resolved]

NARRATIVE: CASE EVENT DATE: 20191101
